FAERS Safety Report 22134610 (Version 2)
Quarter: 2023Q2

REPORT INFORMATION
  Report Type: Spontaneous
  Country: QA (occurrence: QA)
  Receive Date: 20230324
  Receipt Date: 20230511
  Transmission Date: 20230722
  Serious: Yes (Hospitalization, Other)
  Sender: FDA-Public Use
  Company Number: QA-002147023-NVSC2023QA057183

PATIENT
  Age: 19 Year
  Sex: Female

DRUGS (6)
  1. CRIZANLIZUMAB [Suspect]
     Active Substance: CRIZANLIZUMAB
     Indication: Sickle cell disease
     Dosage: 5 MG/KG, QMO
     Route: 065
     Dates: start: 20210329, end: 20210329
  2. CRIZANLIZUMAB [Suspect]
     Active Substance: CRIZANLIZUMAB
     Indication: Sickle cell anaemia with crisis
     Dosage: 5 MG/KG AFTER (2 WEEKS)
     Route: 065
  3. CRIZANLIZUMAB [Suspect]
     Active Substance: CRIZANLIZUMAB
     Dosage: 5 MG/KG, QMO
     Route: 065
  4. CRIZANLIZUMAB [Suspect]
     Active Substance: CRIZANLIZUMAB
     Dosage: 5 MG/KG, QMO
     Route: 042
     Dates: start: 20220529
  5. HYDROXYUREA [Concomitant]
     Active Substance: HYDROXYUREA
     Indication: Sickle cell anaemia with crisis
     Dosage: 1500 MG, QD (5 YEARS AGO)
     Route: 065
  6. ACETAMINOPHEN [Concomitant]
     Active Substance: ACETAMINOPHEN
     Indication: Premedication
     Dosage: UNK (INFUSION WAS EXTENDED TO 1 H)
     Route: 065

REACTIONS (6)
  - Sickle cell anaemia with crisis [Unknown]
  - Infusion related reaction [Recovered/Resolved]
  - Pain in extremity [Recovered/Resolved]
  - Pain [Recovered/Resolved]
  - Back pain [Recovered/Resolved]
  - Pain [Recovering/Resolving]
